FAERS Safety Report 4861422-8 (Version None)
Quarter: 2005Q4

REPORT INFORMATION
  Report Type: 
  Country: None (occurrence: None)
  Receive Date: 20051220
  Receipt Date: 20051214
  Transmission Date: 20060501
  Serious: Yes (Hospitalization)
  Sender: FDA-Public Use
  Company Number: PHBS2005FR18472

PATIENT
  Age: 21 Year
  Sex: Female

DRUGS (3)
  1. CYCLOSPORINE [Suspect]
     Indication: LIVER TRANSPLANT
     Dosage: UNK, UNK
     Route: 065
     Dates: start: 19880101
  2. AZATHIOPRINE [Suspect]
     Indication: LIVER TRANSPLANT
     Route: 065
  3. PREDNISONE TAB [Suspect]
     Indication: LIVER TRANSPLANT
     Dosage: 7 MG/D
     Route: 065

REACTIONS (9)
  - ARTHRALGIA [None]
  - CHONDROLYSIS [None]
  - EXOSTOSIS [None]
  - FIBROSIS [None]
  - HIP ARTHROPLASTY [None]
  - HYPERPLASIA [None]
  - JOINT EFFUSION [None]
  - KNEE ARTHROPLASTY [None]
  - LIVER TRANSPLANT [None]
